FAERS Safety Report 17468556 (Version 1)
Quarter: 2020Q1

REPORT INFORMATION
  Report Type: Spontaneous
  Country: US (occurrence: US)
  Receive Date: 20200227
  Receipt Date: 20200227
  Transmission Date: 20200409
  Serious: No
  Sender: FDA-Public Use
  Company Number: US-ASTRAZENECA-2020SE17188

PATIENT
  Age: 9588 Day
  Sex: Female
  Weight: 88 kg

DRUGS (2)
  1. PRENATAL VITAMINS [Concomitant]
     Active Substance: VITAMINS
     Indication: PREGNANCY
     Route: 048
     Dates: start: 201910
  2. PULMICORT FLEXHALER [Suspect]
     Active Substance: BUDESONIDE
     Indication: ASTHMA
     Route: 055
     Dates: start: 201912

REACTIONS (9)
  - Exposure during pregnancy [Unknown]
  - Ageusia [Unknown]
  - Dry mouth [Unknown]
  - Device malfunction [Unknown]
  - Malaise [Unknown]
  - Product dose omission [Unknown]
  - Wheezing [Unknown]
  - Cough [Unknown]
  - Intentional product misuse [Unknown]

NARRATIVE: CASE EVENT DATE: 201912
